FAERS Safety Report 7199410-1 (Version None)
Quarter: 2010Q4

REPORT INFORMATION
  Report Type: 
  Country: None (occurrence: None)
  Receive Date: 20101228
  Receipt Date: 20101221
  Transmission Date: 20110411
  Serious: Yes (Hospitalization)
  Sender: FDA-Public Use
  Company Number: GB-PFIZER INC-2006026092

PATIENT
  Age: 71 Year
  Sex: Male
  Weight: 63 kg

DRUGS (7)
  1. SUNITINIB MALATE [Suspect]
     Indication: GASTROINTESTINAL STROMAL TUMOUR
     Dosage: 50 MG, 1X/DAY
     Route: 048
     Dates: start: 20060126, end: 20060222
  2. NICORANDIL [Concomitant]
     Route: 048
     Dates: start: 20030318
  3. OMEPRAZOLE [Concomitant]
     Route: 048
     Dates: start: 20051021
  4. ATENOLOL [Concomitant]
     Route: 048
     Dates: start: 20010913
  5. SIMVASTATIN [Concomitant]
     Route: 048
     Dates: start: 20010703
  6. LISINOPRIL [Concomitant]
     Route: 048
     Dates: start: 20010308
  7. CLOPIDOGREL [Concomitant]
     Route: 048
     Dates: start: 20060212

REACTIONS (4)
  - CARDIAC FAILURE CONGESTIVE [None]
  - CELLULITIS [None]
  - LIVER DISORDER [None]
  - LOWER RESPIRATORY TRACT INFECTION [None]
